FAERS Safety Report 5489060-7 (Version None)
Quarter: 2007Q4

REPORT INFORMATION
  Report Type: 
  Country: None (occurrence: None)
  Receive Date: 20071018
  Receipt Date: 20071012
  Transmission Date: 20080405
  Serious: Yes (Hospitalization, Other)
  Sender: FDA-Public Use
  Company Number: PHNU2007DE01997

PATIENT
  Sex: Male
  Weight: 75 kg

DRUGS (6)
  1. ZOMETA [Suspect]
     Indication: PROSTATE CANCER METASTATIC
     Dosage: 4 MG, QMO
     Route: 042
     Dates: start: 20030701, end: 20070201
  2. TAXOTERE [Concomitant]
     Dosage: 35 MG/M2, UNK
     Dates: start: 20060501, end: 20070101
  3. DECORTIN [Concomitant]
     Dates: start: 20060501, end: 20070101
  4. ESTRAMUSTINE [Concomitant]
     Dates: start: 20030801, end: 20040101
  5. VALORON [Concomitant]
     Dates: start: 20060901
  6. NOCTAMID [Concomitant]
     Dosage: 1 MG, QD
     Dates: start: 20060901

REACTIONS (8)
  - BONE OPERATION [None]
  - DENTAL OPERATION [None]
  - ORAL SURGERY [None]
  - OSTEITIS [None]
  - OSTEONECROSIS [None]
  - SINUS PERFORATION [None]
  - TOOTH ABSCESS [None]
  - TOOTH EXTRACTION [None]
